FAERS Safety Report 11176623 (Version 1)
Quarter: 2015Q2

REPORT INFORMATION
  Report Type: Spontaneous
  Country: US (occurrence: None)
  Receive Date: 20150608
  Receipt Date: 20150608
  Transmission Date: 20150821
  Serious: Yes (Other)
  Sender: FDA-Public Use
  Company Number: 001932007A

PATIENT
  Age: 13 Year
  Sex: Female

DRUGS (4)
  1. PROACTIV PLUS EMERGENCY BLEMISH RELIEF [Suspect]
     Active Substance: BENZOYL PEROXIDE
     Indication: ACNE
     Dosage: ONCE DERMAL
     Dates: start: 20150514
  2. PROACTIV PLUS PORE TARGETING TREATMENT [Suspect]
     Active Substance: BENZOYL PEROXIDE
     Indication: ACNE
     Dosage: ONCE DERMAL
     Dates: start: 20150514
  3. PROACTIV PLUS COMPLEXION PERFECTING HYDRATOR [Suspect]
     Active Substance: SALICYLIC ACID
     Indication: ACNE
     Dosage: ONCE DERMAL
     Dates: start: 20150514
  4. PROACTIVPLUS SKIN SMOOTHING EXFOLIATOR [Suspect]
     Active Substance: BENZOYL PEROXIDE
     Indication: ACNE
     Dosage: ONCE DERMAL
     Dates: start: 20150514

REACTIONS (5)
  - Urticaria [None]
  - Hypersensitivity [None]
  - Swelling face [None]
  - Erythema [None]
  - Pharyngeal oedema [None]

NARRATIVE: CASE EVENT DATE: 20150515
